FAERS Safety Report 21423390 (Version 1)
Quarter: 2022Q4

REPORT INFORMATION
  Report Type: Spontaneous
  Country: NL (occurrence: NL)
  Receive Date: 20221007
  Receipt Date: 20221007
  Transmission Date: 20230113
  Serious: Yes (Hospitalization)
  Sender: FDA-Public Use
  Company Number: NL-HORIZON THERAPEUTICS-HZN-2022-007545

PATIENT

DRUGS (1)
  1. RAVICTI [Suspect]
     Active Substance: GLYCEROL PHENYLBUTYRATE
     Indication: Ornithine transcarbamoylase deficiency
     Route: 065

REACTIONS (3)
  - Respiratory alkalosis [Unknown]
  - Ammonia increased [Unknown]
  - Product storage error [Unknown]

NARRATIVE: CASE EVENT DATE: 20220901
